FAERS Safety Report 4356156-2 (Version None)
Quarter: 2004Q2

REPORT INFORMATION
  Report Type: 
  Country: None (occurrence: None)
  Receive Date: 20040506
  Receipt Date: 20040401
  Transmission Date: 20050107
  Serious: Yes (Hospitalization)
  Sender: FDA-Public Use
  Company Number: 8005034

PATIENT
  Age: 26 Year
  Sex: Female
  Weight: 62 kg

DRUGS (14)
  1. LEVETIRACETAM [Suspect]
     Indication: PARTIAL SEIZURES
     Dosage: 500 MG 2/D PO
     Dates: start: 20040106, end: 20040111
  2. LEVETIRACETAM [Suspect]
     Indication: PARTIAL SEIZURES
     Dosage: 500 MG PO
     Dates: start: 20040120, end: 20040101
  3. LEVETIRACETAM [Suspect]
     Indication: PARTIAL SEIZURES
     Dosage: 1500 MG 2/D PO
     Dates: start: 20040101
  4. LAMOTRIGINE [Suspect]
     Indication: PARTIAL SEIZURES
     Dosage: 300 MG 2/D PO
     Dates: start: 20020101, end: 20040106
  5. LAMOTRIGINE [Suspect]
     Indication: PARTIAL SEIZURES
     Dosage: 200 MG 2/D PO
     Dates: start: 20040107, end: 20040108
  6. LAMOTRIGINE [Suspect]
     Indication: PARTIAL SEIZURES
     Dosage: 100 MG 2/D PO
     Dates: start: 20040110, end: 20040111
  7. LAMOTRIGINE [Suspect]
     Indication: PARTIAL SEIZURES
     Dosage: 200 MG 2/D PO
     Dates: start: 20040112, end: 20040115
  8. LAMOTRIGINE [Suspect]
     Indication: PARTIAL SEIZURES
     Dosage: 500 MG/D PO
     Dates: start: 20040115, end: 20040101
  9. LAMOTRIGINE [Suspect]
     Indication: PARTIAL SEIZURES
     Dosage: 300 MG 2/D PO
     Dates: start: 20040101
  10. CARBAMAZEPINE [Suspect]
     Indication: PARTIAL SEIZURES
     Dosage: 400 MG 2/D PO
     Dates: start: 19950101, end: 20040106
  11. CLONAZEPAM [Concomitant]
  12. TRIMETHOPRIM [Concomitant]
  13. NAPROXEN [Concomitant]
  14. ACETAMINOPHEN [Concomitant]

REACTIONS (11)
  - CEREBELLAR ATAXIA [None]
  - COMPLEX PARTIAL SEIZURES [None]
  - CONFUSIONAL STATE [None]
  - CONVULSION [None]
  - DRUG TOXICITY [None]
  - ENCEPHALOPATHY [None]
  - HEADACHE [None]
  - NYSTAGMUS [None]
  - SOMNOLENCE [None]
  - URINARY TRACT INFECTION ENTEROCOCCAL [None]
  - VISION BLURRED [None]
